FAERS Safety Report 5739791-6 (Version None)
Quarter: 2008Q2

REPORT INFORMATION
  Report Type: 
  Country: None (occurrence: None)
  Receive Date: 20080509
  Receipt Date: 20080509
  Transmission Date: 20081010
  Serious: Yes (Hospitalization)
  Sender: FDA-Public Use
  Company Number: None

PATIENT
  Age: 72 Year
  Sex: Female

DRUGS (1)
  1. ATORVASTATIN CALCIUM [Suspect]
     Indication: HYPERCHOLESTEROLAEMIA
     Dosage: 20MG DAILY PO
     Route: 048

REACTIONS (6)
  - GENERAL PHYSICAL HEALTH DETERIORATION [None]
  - ILEUS [None]
  - PNEUMONIA [None]
  - REFUSAL OF TREATMENT BY RELATIVE [None]
  - RHABDOMYOLYSIS [None]
  - UNRESPONSIVE TO STIMULI [None]
